FAERS Safety Report 12423090 (Version 1)
Quarter: 2016Q2

REPORT INFORMATION
  Report Type: Spontaneous
  Country: US (occurrence: None)
  Receive Date: 20160531
  Receipt Date: 20160531
  Transmission Date: 20160815
  Serious: Yes (Life-Threatening, Hospitalization)
  Sender: FDA-Public Use
  Company Number: None

PATIENT
  Age: 44 Year
  Sex: Female
  Weight: 105.69 kg

DRUGS (4)
  1. FOLIC ACID. [Concomitant]
     Active Substance: FOLIC ACID
  2. REMICADE [Suspect]
     Active Substance: INFLIXIMAB
     Indication: RHEUMATOID ARTHRITIS
     Route: 042
     Dates: start: 20160427, end: 20160520
  3. METHOTREXATE [Concomitant]
     Active Substance: METHOTREXATE
  4. PLAQUINIL [Concomitant]

REACTIONS (4)
  - Hypertension [None]
  - Acute myocardial infarction [None]
  - Headache [None]
  - Embolism [None]

NARRATIVE: CASE EVENT DATE: 20160520
